FAERS Safety Report 23407443 (Version 4)
Quarter: 2024Q1

REPORT INFORMATION
  Report Type: Spontaneous
  Country: DE (occurrence: DE)
  Receive Date: 20240117
  Receipt Date: 20240206
  Transmission Date: 20240410
  Serious: Yes (Hospitalization, Other)
  Sender: FDA-Public Use
  Company Number: DE-INCYTE CORPORATION-2024IN000076

PATIENT

DRUGS (6)
  1. TAFASITAMAB [Suspect]
     Active Substance: TAFASITAMAB
     Indication: Acute lymphocytic leukaemia
     Dosage: 325 MILLIGRAM, D1, 4, 8, 15
     Route: 042
     Dates: start: 20240102, end: 20240120
  2. PANTOPRAZOLE [Concomitant]
     Active Substance: PANTOPRAZOLE
     Indication: Gastritis prophylaxis
     Dosage: 20 MILLIGRAM, QD
     Route: 048
  3. XARELTO [Concomitant]
     Active Substance: RIVAROXABAN
     Indication: Thrombosis prophylaxis
     Dosage: 5 MILLIGRAM, BID
     Route: 048
     Dates: start: 202308
  4. CIMETIDINE [Concomitant]
     Active Substance: CIMETIDINE
     Indication: Prophylaxis
     Dosage: 130 MILLIGRAM
     Route: 042
     Dates: start: 20240102
  5. ACETAMINOPHEN [Concomitant]
     Active Substance: ACETAMINOPHEN
     Indication: Prophylaxis
     Dosage: 400 MILLIGRAM
     Route: 042
     Dates: start: 20240102
  6. DIMETHINDENE [Concomitant]
     Active Substance: DIMETHINDENE
     Indication: Prophylaxis
     Dosage: 2.6 MILLIGRAM
     Route: 042
     Dates: start: 20240102

REACTIONS (5)
  - Acute lymphocytic leukaemia [Not Recovered/Not Resolved]
  - Infusion related reaction [Recovered/Resolved]
  - Disease progression [Not Recovered/Not Resolved]
  - Drug ineffective [Unknown]
  - Off label use [Unknown]

NARRATIVE: CASE EVENT DATE: 20240102
